FAERS Safety Report 9981006 (Version 5)
Quarter: 2014Q2

REPORT INFORMATION
  Report Type: Spontaneous
  Country: IT (occurrence: IT)
  Receive Date: 20140307
  Receipt Date: 20140422
  Transmission Date: 20141212
  Serious: Yes (Hospitalization)
  Sender: FDA-Public Use
  Company Number: PHHY2014IT025679

PATIENT
  Age: 39 Year
  Sex: Female

DRUGS (2)
  1. FLUOXETINE [Suspect]
     Indication: DRUG ABUSE
     Dosage: 1.8 G, ONCE/SINGLE
     Route: 048
     Dates: start: 20140218, end: 20140218
  2. EUTIROX [Concomitant]
     Indication: THYROIDECTOMY
     Dosage: 175 MG, UNK
     Route: 048
     Dates: start: 20080101, end: 20140221

REACTIONS (3)
  - Drug abuse [Recovered/Resolved]
  - Somnolence [Recovered/Resolved]
  - Asthenia [Recovered/Resolved]
